FAERS Safety Report 9173694 (Version 1)
Quarter: 2013Q1

REPORT INFORMATION
  Report Type: Spontaneous
  Country: BE (occurrence: None)
  Receive Date: 20130318
  Receipt Date: 20130318
  Transmission Date: 20140127
  Serious: Yes (Other)
  Sender: FDA-Public Use
  Company Number: CIP-2013-00089

PATIENT
  Sex: 0

DRUGS (5)
  1. IRINOTECAN INJECTION (IRINOTECAN) [Suspect]
     Indication: NEOPLASM
  2. LEUCOVORIN [Suspect]
     Indication: NEOPLASM
  3. FLUOROURACIL [Suspect]
     Indication: NEOPLASM
  4. AFLIBERCEPT [Suspect]
     Indication: NEOPLASM
  5. LEUCOVORIN [Suspect]
     Indication: NEOPLASM

REACTIONS (1)
  - Proteinuria [None]
